FAERS Safety Report 4871072-5 (Version None)
Quarter: 2005Q4

REPORT INFORMATION
  Report Type: 
  Country: None (occurrence: None)
  Receive Date: 20051115
  Receipt Date: 20050824
  Transmission Date: 20060501
  Serious: No
  Sender: FDA-Public Use
  Company Number: 408583

PATIENT
  Age: 56 Year
  Sex: Male

DRUGS (2)
  1. PEGASYS [Suspect]
     Indication: HEPATITIS C VIRUS
     Dosage: OTHER
     Dates: start: 20050219
  2. COPEGUS [Suspect]
     Indication: HEPATITIS C VIRUS
     Dosage: 6 DOSE FORM DAILY ORAL
     Route: 048
     Dates: start: 20050219, end: 20050815

REACTIONS (2)
  - FATIGUE [None]
  - HAEMOGLOBIN DECREASED [None]
